FAERS Safety Report 15132175 (Version 2)
Quarter: 2018Q3

REPORT INFORMATION
  Report Type: Spontaneous
  Country: ES (occurrence: ES)
  Receive Date: 20180711
  Receipt Date: 20180920
  Transmission Date: 20181010
  Serious: No
  Sender: FDA-Public Use
  Company Number: ES-BAUSCH-BL-2018-018878

PATIENT
  Age: 26 Year
  Sex: Male

DRUGS (6)
  1. ACYCLOVIR. [Suspect]
     Active Substance: ACYCLOVIR
     Indication: OPHTHALMIC HERPES SIMPLEX
     Dosage: 5 TIMES A DAY
     Route: 061
  2. MEROPENEM. [Concomitant]
     Active Substance: MEROPENEM
     Indication: PROPHYLAXIS
  3. NYSTATIN. [Concomitant]
     Active Substance: NYSTATIN
     Indication: PROPHYLAXIS
  4. ACYCLOVIR. [Concomitant]
     Active Substance: ACYCLOVIR
     Indication: HERPES SIMPLEX
  5. AMOXICILLIN. [Concomitant]
     Active Substance: AMOXICILLIN
     Indication: SKIN LESION
  6. ACYCLOVIR. [Concomitant]
     Active Substance: ACYCLOVIR
     Indication: PROPHYLAXIS
     Dosage: SYSTEMIC

REACTIONS (1)
  - Therapy non-responder [Unknown]
